FAERS Safety Report 13172535 (Version 2)
Quarter: 2017Q2

REPORT INFORMATION
  Report Type: Spontaneous
  Country: US (occurrence: US)
  Receive Date: 20170201
  Receipt Date: 20170403
  Transmission Date: 20170830
  Serious: Yes (Other)
  Sender: FDA-Public Use
  Company Number: US-GLAXOSMITHKLINE-US2017013430

PATIENT
  Age: 55 Year
  Sex: Female

DRUGS (8)
  1. ALEVE [Concomitant]
     Active Substance: NAPROXEN SODIUM
  2. HYDROCHLOROTHIAZIDE. [Concomitant]
     Active Substance: HYDROCHLOROTHIAZIDE
  3. TYLENOL [Concomitant]
     Active Substance: ACETAMINOPHEN
  4. EXCEDRIN (USA) [Concomitant]
  5. VENTOLIN HFA [Suspect]
     Active Substance: ALBUTEROL SULFATE
     Indication: ASTHMA
     Dosage: 2 PUFF(S), PRN
     Route: 055
     Dates: start: 2016
  6. DULOXETINE. [Concomitant]
     Active Substance: DULOXETINE
  7. LEVOTHYROXINE. [Concomitant]
     Active Substance: LEVOTHYROXINE
  8. VENTOLIN HFA [Suspect]
     Active Substance: ALBUTEROL SULFATE
     Indication: CHRONIC OBSTRUCTIVE PULMONARY DISEASE

REACTIONS (8)
  - Choking [Recovered/Resolved]
  - Intentional device use issue [Unknown]
  - Product outer packaging issue [Unknown]
  - Drug dispensing error [Unknown]
  - Product quality issue [Unknown]
  - Foreign body [Unknown]
  - Retching [Recovered/Resolved]
  - Cough [Recovered/Resolved]

NARRATIVE: CASE EVENT DATE: 20170127
